FAERS Safety Report 10556360 (Version 1)
Quarter: 2014Q4

REPORT INFORMATION
  Report Type: Spontaneous
  Country: US (occurrence: US)
  Receive Date: 20141031
  Receipt Date: 20141031
  Transmission Date: 20150529
  Serious: No
  Sender: FDA-Public Use
  Company Number: US-BIOGENIDEC-2014BI110541

PATIENT
  Age: 54 Year
  Sex: Female

DRUGS (1)
  1. TECFIDERA [Suspect]
     Active Substance: DIMETHYL FUMARATE
     Indication: RELAPSING-REMITTING MULTIPLE SCLEROSIS
     Route: 048
     Dates: start: 201410, end: 20141017

REACTIONS (11)
  - Multiple sclerosis [Unknown]
  - Eye swelling [Unknown]
  - Swelling face [Not Recovered/Not Resolved]
  - Feeling abnormal [Unknown]
  - Dry skin [Unknown]
  - Abdominal discomfort [Not Recovered/Not Resolved]
  - Chemical injury [Not Recovered/Not Resolved]
  - Flushing [Unknown]
  - Urticaria [Unknown]
  - General symptom [Unknown]
  - Erythema [Not Recovered/Not Resolved]

NARRATIVE: CASE EVENT DATE: 201410
